FAERS Safety Report 8770713 (Version 1)
Quarter: 2012Q4

REPORT INFORMATION
  Report Type: 
  Country: US (occurrence: US)
  Receive Date: 20120906
  Receipt Date: 20120906
  Transmission Date: 20130627
  Serious: Yes (Hospitalization)
  Sender: FDA-Public Use
  Company Number: US-BAYER-2012-091173

PATIENT
  Age: 28 Year
  Sex: Female

DRUGS (9)
  1. YASMIN [Suspect]
  2. YAZ [Suspect]
     Indication: MENSTRUATION IRREGULAR
  3. YAZ [Suspect]
     Indication: CONTRACEPTION
  4. ADVAIR [Concomitant]
  5. PROVENTIL [Concomitant]
     Indication: ASTHMA
     Dosage: 2 puff(s), PRN
     Dates: start: 20070913
  6. PROVENTIL [Concomitant]
     Indication: ASTHMA
     Dosage: 2 puff(s), PRN
     Dates: start: 20071212
  7. AUGMENTIN [Concomitant]
     Dosage: UNK
     Dates: start: 20070913
  8. ANTIFUNGALS [Concomitant]
     Dosage: UNK
     Dates: start: 20070913
  9. CIPRO [Concomitant]
     Indication: URINARY TRACT INFECTION

REACTIONS (1)
  - Pulmonary embolism [None]
